FAERS Safety Report 4598323-9 (Version None)
Quarter: 2005Q1

REPORT INFORMATION
  Report Type: 
  Country: None (occurrence: None)
  Receive Date: 20050304
  Receipt Date: 20050204
  Transmission Date: 20050727
  Serious: Yes (Death)
  Sender: FDA-Public Use
  Company Number: PHHO2005MY02081

PATIENT
  Age: 17 Year
  Sex: Female
  Weight: 43 kg

DRUGS (4)
  1. GLEEVEC [Suspect]
     Indication: CHRONIC MYELOID LEUKAEMIA
     Dosage: 300 MG, QD
     Route: 048
     Dates: start: 20041210
  2. CYCLOSPORINE [Concomitant]
     Dates: start: 20041031
  3. PEN V [Concomitant]
     Indication: ANTIBACTERIAL PROPHYLAXIS
     Dates: start: 20041126
  4. BACTRIM [Concomitant]
     Indication: PROPHYLAXIS
     Dates: start: 20041126

REACTIONS (5)
  - DISEASE PROGRESSION [None]
  - HYPERBILIRUBINAEMIA [None]
  - JAUNDICE [None]
  - LIVER DISORDER [None]
  - SEPSIS [None]
